FAERS Safety Report 9808992 (Version 4)
Quarter: 2014Q3

REPORT INFORMATION
  Report Type: Report from Study
  Country: US (occurrence: US)
  Receive Date: 20140110
  Receipt Date: 20140902
  Transmission Date: 20150326
  Serious: Yes (Other)
  Sender: FDA-Public Use
  Company Number: US-GLAXOSMITHKLINE-A1042160A

PATIENT
  Sex: Female

DRUGS (5)
  1. UNKNOWN MEDICATION [Suspect]
     Active Substance: UNSPECIFIED INGREDIENT
     Indication: PRODUCT USED FOR UNKNOWN INDICATION
     Route: 065
  2. ALBUTEROL. [Suspect]
     Active Substance: ALBUTEROL
     Indication: CHRONIC OBSTRUCTIVE PULMONARY DISEASE
     Route: 065
  3. PROAIR HFA [Suspect]
     Active Substance: ALBUTEROL SULFATE
     Indication: CHRONIC OBSTRUCTIVE PULMONARY DISEASE
     Route: 065
  4. ANESTHESIA [Suspect]
     Active Substance: UNSPECIFIED INGREDIENT
     Indication: PRODUCT USED FOR UNKNOWN INDICATION
     Route: 065
  5. INFLUENZA VACCINE UNSPECIFIED 2013-2014 SEASON [Suspect]
     Active Substance: INFLUENZA VIRUS VACCINE
     Indication: PROPHYLAXIS
     Route: 065
     Dates: start: 20130911, end: 20130911

REACTIONS (14)
  - Heart rate decreased [Recovered/Resolved]
  - Restless legs syndrome [Recovered/Resolved]
  - Injection site urticaria [Recovered/Resolved]
  - Headache [Recovered/Resolved]
  - Spinal fracture [Recovered/Resolved]
  - Weight increased [Recovered/Resolved]
  - Spinal compression fracture [Recovered/Resolved]
  - Injection site erythema [Recovered/Resolved]
  - Ventricular extrasystoles [Recovered/Resolved]
  - Muscle spasms [Recovered/Resolved]
  - Fall [Recovered/Resolved]
  - Surgery [Recovered/Resolved]
  - Blood potassium decreased [Recovered/Resolved]
  - Alopecia [Unknown]

NARRATIVE: CASE EVENT DATE: 201309
